FAERS Safety Report 6365660-7 (Version None)
Quarter: 2009Q3

REPORT INFORMATION
  Report Type: 
  Country: None (occurrence: None)
  Receive Date: 20090919
  Receipt Date: 20090821
  Transmission Date: 20100115
  Serious: Yes (Other)
  Sender: FDA-Public Use
  Company Number: US-ABBOTT-09P-163-0593044-00

PATIENT

DRUGS (2)
  1. HUMIRA [Suspect]
     Indication: PSORIASIS
     Dates: start: 20081127
  2. SEPTRA [Suspect]
     Indication: URINARY TRACT INFECTION
     Dates: start: 20090201

REACTIONS (15)
  - ALVEOLAR OSTEITIS [None]
  - ANXIETY [None]
  - CYST [None]
  - FATIGUE [None]
  - FLATULENCE [None]
  - HYPOAESTHESIA [None]
  - INTERVERTEBRAL DISC DISPLACEMENT [None]
  - JOINT STIFFNESS [None]
  - MUSCULOSKELETAL STIFFNESS [None]
  - PARAESTHESIA [None]
  - TOOTH INFECTION [None]
  - TOOTHACHE [None]
  - URINARY TRACT INFECTION [None]
  - URTICARIA [None]
  - WEIGHT DECREASED [None]
